FAERS Safety Report 15010432 (Version 1)
Quarter: 2018Q2

REPORT INFORMATION
  Report Type: Spontaneous
  Country: AU (occurrence: AU)
  Receive Date: 20180614
  Receipt Date: 20180614
  Transmission Date: 20180711
  Serious: Yes (Other)
  Sender: FDA-Public Use
  Company Number: AU-TEVA-2018-AU-905666

PATIENT
  Sex: Male

DRUGS (4)
  1. ARIPIPRAZOLE. [Suspect]
     Active Substance: ARIPIPRAZOLE
     Indication: PRODUCT USED FOR UNKNOWN INDICATION
     Route: 065
  2. OLANZAPINE. [Suspect]
     Active Substance: OLANZAPINE
     Route: 065
  3. HALOPERIDOL. [Suspect]
     Active Substance: HALOPERIDOL
     Route: 065
  4. ZUCLOPENTHIXOL NOS [Suspect]
     Active Substance: ZUCLOPENTHIXOL
     Route: 065

REACTIONS (4)
  - Blood creatine phosphokinase increased [Unknown]
  - Neuroleptic malignant syndrome [Unknown]
  - Tachypnoea [Unknown]
  - Tachycardia [Unknown]
